FAERS Safety Report 21944126 (Version 1)
Quarter: 2023Q1

REPORT INFORMATION
  Report Type: Spontaneous
  Country: US (occurrence: US)
  Receive Date: 20230202
  Receipt Date: 20230202
  Transmission Date: 20230418
  Serious: No
  Sender: FDA-Public Use
  Company Number: US-OYSTER POINT PHARMA, INC-US-OYS-23-000042

PATIENT
  Sex: Female

DRUGS (2)
  1. TYRVAYA [Suspect]
     Active Substance: VARENICLINE TARTRATE
     Indication: Dry eye
     Dosage: 1 DOSAGE FORM, BID
     Route: 045
     Dates: start: 2022
  2. GLEEVEC [Concomitant]
     Active Substance: IMATINIB MESYLATE
     Indication: Neoplasm malignant
     Dosage: UNK, UNK
     Route: 065

REACTIONS (7)
  - Dizziness [Unknown]
  - Headache [Unknown]
  - Nausea [Unknown]
  - Drug interaction [Unknown]
  - Adverse drug reaction [Unknown]
  - Underdose [Unknown]
  - Inappropriate schedule of product administration [Unknown]
